FAERS Safety Report 6558889-6 (Version None)
Quarter: 2010Q1

REPORT INFORMATION
  Report Type: 
  Country: None (occurrence: None)
  Receive Date: 20100129
  Receipt Date: 20100119
  Transmission Date: 20100710
  Serious: No
  Sender: FDA-Public Use
  Company Number: US-B.I. PHARMACEUTICALS,INC./RIDGEFIELD-2010-BP-00701BP

PATIENT
  Sex: Female

DRUGS (4)
  1. SPIRIVA [Suspect]
     Indication: MYCOBACTERIUM AVIUM COMPLEX INFECTION
     Dosage: 18 MCG
     Route: 055
     Dates: start: 20091201
  2. METHADONE [Concomitant]
     Indication: SPINAL COLUMN INJURY
  3. REMERON [Concomitant]
     Indication: DEPRESSION
  4. MULTI-VITAMIN [Concomitant]
     Indication: PROPHYLAXIS

REACTIONS (4)
  - ABDOMINAL PAIN UPPER [None]
  - DECREASED APPETITE [None]
  - NAUSEA [None]
  - VOMITING [None]
